FAERS Safety Report 9414279 (Version 1)
Quarter: 2013Q3

REPORT INFORMATION
  Report Type: Spontaneous
  Country: GR (occurrence: None)
  Receive Date: 20130717
  Receipt Date: 20130717
  Transmission Date: 20140515
  Serious: Yes (Disabling)
  Sender: FDA-Public Use
  Company Number: ACO_37351_2013

PATIENT
  Age: 30 Year
  Sex: Male

DRUGS (4)
  1. FAMPYRA (DALFAMPRIDINE) TABLET, 10MG [Suspect]
     Indication: PRODUCT USED FOR UNKNOWN INDICATION
     Route: 048
     Dates: start: 201301, end: 201305
  2. MEDROL (METHYLPREDNISOLONE SODIUM PHOSPHATE) [Concomitant]
  3. MIOREL (THIOCOLCHICOSIDE) [Concomitant]
  4. SIRDALUD (TIZANIDINE HYDROCHLORIDE) [Concomitant]

REACTIONS (3)
  - Abasia [None]
  - Gait disturbance [None]
  - Malaise [None]
